FAERS Safety Report 9781272 (Version 2)
Quarter: 2013Q4

REPORT INFORMATION
  Report Type: Spontaneous
  Country: US (occurrence: US)
  Receive Date: 20131224
  Receipt Date: 20131224
  Transmission Date: 20140711
  Serious: No
  Sender: FDA-Public Use
  Company Number: US-GILEAD-2010-0030825

PATIENT
  Age: 36 Year
  Sex: Male
  Weight: 46.58 kg

DRUGS (11)
  1. CAYSTON [Suspect]
  2. ADVAIR [Concomitant]
     Indication: CYSTIC FIBROSIS
  3. PULMOZYME [Concomitant]
     Indication: CYSTIC FIBROSIS
  4. CARDIZEM [Concomitant]
  5. ERGOCALCIFEROL [Concomitant]
  6. ACTOS [Concomitant]
     Indication: CYSTIC FIBROSIS RELATED DIABETES
  7. CREON 24 [Concomitant]
  8. MEPHYTON [Concomitant]
  9. FOSAMAX [Concomitant]
  10. CITRACAL [Concomitant]
  11. SOFTGEL [Concomitant]

REACTIONS (5)
  - Influenza like illness [Recovered/Resolved]
  - Arthralgia [Recovered/Resolved]
  - Arthralgia [Recovered/Resolved]
  - Back pain [Recovered/Resolved]
  - Chest discomfort [Recovered/Resolved]
